FAERS Safety Report 4607805-2 (Version None)
Quarter: 2005Q1

REPORT INFORMATION
  Report Type: 
  Country: None (occurrence: None)
  Receive Date: 20050309
  Receipt Date: 20050221
  Transmission Date: 20050727
  Serious: Yes (Hospitalization)
  Sender: FDA-Public Use
  Company Number: DSA_25662_2005

PATIENT
  Age: 61 Year
  Sex: Female

DRUGS (2)
  1. EPROSARTAN [Suspect]
     Indication: HYPERTENSION
     Dosage: 600 MG Q DAY PO
     Route: 048
     Dates: start: 20030508, end: 20041104
  2. ETHINYLESTRADIOL + NORETHISTERONE [Concomitant]

REACTIONS (5)
  - CHOLELITHIASIS [None]
  - DRUG TOXICITY [None]
  - GRANULOMATOUS LIVER DISEASE [None]
  - HEPATITIS CHOLESTATIC [None]
  - RENAL FAILURE ACUTE [None]
